FAERS Safety Report 4341716-5 (Version None)
Quarter: 2004Q2

REPORT INFORMATION
  Report Type: 
  Country: None (occurrence: None)
  Receive Date: 20040415
  Receipt Date: 20040330
  Transmission Date: 20050107
  Serious: Yes (Hospitalization)
  Sender: FDA-Public Use
  Company Number: US_0403101868

PATIENT
  Sex: Male
  Weight: 83 kg

DRUGS (11)
  1. ALIMTA [Suspect]
     Indication: MESOTHELIOMA
     Dosage: 1000 MG
     Dates: start: 20040316
  2. GEMZAR [Suspect]
     Indication: MESOTHELIOMA
     Dosage: 2010 MG
     Dates: start: 20040316
  3. DECADRON [Concomitant]
  4. NEULASTA [Concomitant]
  5. EPOGEN [Concomitant]
  6. VITAMIN B-12 [Concomitant]
  7. FOLIC ACID [Concomitant]
  8. IRON [Concomitant]
  9. MS CONTIN [Concomitant]
  10. ROBITUSSIN WITH CODEINE [Concomitant]
  11. ALLEGRA [Concomitant]

REACTIONS (19)
  - ANAEMIA [None]
  - BLOOD CALCIUM DECREASED [None]
  - BLOOD SODIUM DECREASED [None]
  - CHEST PAIN [None]
  - CHEST X-RAY ABNORMAL [None]
  - CONSTIPATION [None]
  - DECREASED APPETITE [None]
  - DEHYDRATION [None]
  - DISEASE PROGRESSION [None]
  - FATIGUE [None]
  - ILEUS [None]
  - MARKEDLY REDUCED DIETARY INTAKE [None]
  - NAUSEA [None]
  - NEUROPATHY [None]
  - PLATELET COUNT INCREASED [None]
  - SINUS TACHYCARDIA [None]
  - SMALL INTESTINAL OBSTRUCTION [None]
  - TINNITUS [None]
  - VOMITING [None]
